FAERS Safety Report 25179700 (Version 1)
Quarter: 2025Q2

REPORT INFORMATION
  Report Type: Spontaneous
  Country: US (occurrence: US)
  Receive Date: 20250409
  Receipt Date: 20250409
  Transmission Date: 20250716
  Serious: Yes (Death)
  Sender: PURDUE
  Company Number: US-PURDUE PHARMA-USA-2025-0316624

PATIENT
  Age: 78 Year
  Sex: Male

DRUGS (1)
  1. OXYCONTIN [Suspect]
     Active Substance: OXYCODONE HYDROCHLORIDE
     Indication: Product used for unknown indication
     Route: 065

REACTIONS (2)
  - Victim of homicide [Fatal]
  - Drug diversion [Unknown]

NARRATIVE: CASE EVENT DATE: 20020101
